FAERS Safety Report 7852937-9 (Version None)
Quarter: 2011Q4

REPORT INFORMATION
  Report Type: 
  Country: None (occurrence: None)
  Receive Date: 20111026
  Receipt Date: 20110715
  Transmission Date: 20120403
  Serious: No
  Sender: FDA-Public Use
  Company Number: US-BAYER-2011-063463

PATIENT
  Sex: Female

DRUGS (2)
  1. ALEVE (CAPLET) [Suspect]
     Indication: SINUS HEADACHE
     Dosage: UNK
     Route: 048
  2. ZYRTEC [Concomitant]
     Indication: SINUS HEADACHE

REACTIONS (1)
  - NO ADVERSE EVENT [None]
